FAERS Safety Report 6474089-2 (Version None)
Quarter: 2009Q4

REPORT INFORMATION
  Report Type: 
  Country: None (occurrence: None)
  Receive Date: 20091204
  Receipt Date: 20091130
  Transmission Date: 20100525
  Serious: Yes (Death, Life-Threatening, Hospitalization, Other)
  Sender: FDA-Public Use
  Company Number: JP-BAYER-200913968BYL

PATIENT
  Age: 66 Year
  Sex: Male
  Weight: 71 kg

DRUGS (24)
  1. NEXAVAR [Suspect]
     Indication: HEPATIC NEOPLASM MALIGNANT
     Dosage: UNIT DOSE: 200 MG
     Route: 048
     Dates: start: 20091001
  2. NEXAVAR [Suspect]
     Dosage: UNIT DOSE: 200 MG
     Route: 048
     Dates: start: 20091015
  3. ADALAT CC [Concomitant]
     Dosage: TOTAL DAILY DOSE: 40 MG  UNIT DOSE: 20 MG
     Route: 048
  4. ADALAT CC [Concomitant]
     Dosage: TOTAL DAILY DOSE: 10 MG  UNIT DOSE: 10 MG
     Route: 048
  5. DORNER [Concomitant]
     Dosage: AFTER EACH MEAL
     Route: 048
  6. PLAVIX [Concomitant]
     Dosage: AFTER BREAKFAST
     Route: 048
  7. SERMION [Concomitant]
     Dosage: TOTAL DAILY DOSE: 15 MG  UNIT DOSE: 5 MG
     Route: 048
  8. URSO 250 [Concomitant]
     Dosage: TOTAL DAILY DOSE: 300 MG  UNIT DOSE: 100 MG
     Route: 048
  9. GASMOTIN [Concomitant]
     Dosage: TOTAL DAILY DOSE: 15 MG  UNIT DOSE: 5 MG
     Route: 048
  10. BIOFERMIN [Concomitant]
     Dosage: TOTAL DAILY DOSE: 3 DF
     Route: 048
     Dates: start: 20091013
  11. D-ALFA [Concomitant]
     Dosage: TOTAL DAILY DOSE: 1 DF
     Route: 048
  12. TAKEPRON [Concomitant]
     Dosage: TOTAL DAILY DOSE: 15 MG  UNIT DOSE: 15 MG
     Route: 048
  13. ALLOPURINOL [Concomitant]
     Dosage: TOTAL DAILY DOSE: 100 MG  UNIT DOSE: 100 MG
     Route: 048
  14. MEXITIL [Concomitant]
     Dosage: TOTAL DAILY DOSE: 200 MG  UNIT DOSE: 50 MG
     Route: 048
  15. PRECIPITATED CALCIUM CARBONATE [Concomitant]
     Dosage: TOTAL DAILY DOSE: 3000 MG  UNIT DOSE: 500 MG
     Route: 048
  16. MICARDIS [Concomitant]
     Dosage: TOTAL DAILY DOSE: 40 MG  UNIT DOSE: 20 MG
     Route: 048
  17. MICARDIS [Concomitant]
     Dosage: TOTAL DAILY DOSE: 20 MG  UNIT DOSE: 20 MG
     Route: 048
  18. REGPARA [Concomitant]
     Dosage: TOTAL DAILY DOSE: 25 MG  UNIT DOSE: 25 MG
     Route: 048
  19. KERATINAMIN [Concomitant]
     Indication: ERYTHEMA
     Route: 061
  20. ALBUMIN TANNATE [Concomitant]
     Route: 048
     Dates: start: 20091019
  21. PENTAZOCINE LACTATE [Concomitant]
     Route: 030
  22. DUROTEP [Concomitant]
     Route: 062
     Dates: start: 20091027
  23. OXINORM [Concomitant]
     Route: 048
     Dates: start: 20091027
  24. ALBUMIN (HUMAN) [Concomitant]
     Route: 042
     Dates: start: 20091020

REACTIONS (5)
  - DIARRHOEA [None]
  - FAECES DISCOLOURED [None]
  - MALIGNANT ASCITES [None]
  - MESENTERIC VASCULAR INSUFFICIENCY [None]
  - UPPER GASTROINTESTINAL HAEMORRHAGE [None]
